FAERS Safety Report 10722053 (Version 1)
Quarter: 2015Q1

REPORT INFORMATION
  Report Type: Spontaneous
  Country: US (occurrence: US)
  Receive Date: 20150120
  Receipt Date: 20150120
  Transmission Date: 20150721
  Serious: No
  Sender: FDA-Public Use
  Company Number: US-TEVA-441255USA

PATIENT
  Age: 58 Year
  Sex: Female

DRUGS (2)
  1. DEXTROAMPHETAMINE SULFATE. [Suspect]
     Active Substance: DEXTROAMPHETAMINE SULFATE
     Dosage: 30 MILLIGRAM DAILY;
     Route: 048
     Dates: end: 20131028
  2. NAPROXEN. [Concomitant]
     Active Substance: NAPROXEN

REACTIONS (17)
  - Visual impairment [Unknown]
  - Anxiety [Unknown]
  - Apathy [Unknown]
  - Drug ineffective [Recovered/Resolved]
  - Muscle tightness [Recovered/Resolved]
  - Dyskinesia [Unknown]
  - Dizziness [Unknown]
  - Vision blurred [Unknown]
  - Drug hypersensitivity [Unknown]
  - Movement disorder [Unknown]
  - Musculoskeletal stiffness [Unknown]
  - Somnolence [Unknown]
  - Weight increased [Unknown]
  - Disturbance in attention [Unknown]
  - Fatigue [Unknown]
  - Depression [Unknown]
  - Myalgia [Unknown]

NARRATIVE: CASE EVENT DATE: 20130524
